FAERS Safety Report 9040472 (Version 1)
Quarter: 2013Q1

REPORT INFORMATION
  Report Type: Report from Study
  Country: US (occurrence: US)
  Receive Date: 20130129
  Receipt Date: 20130129
  Transmission Date: 20140127
  Serious: No
  Sender: FDA-Public Use
  Company Number: US-ABBOTT-12P-163-0889351-00

PATIENT
  Age: 69 None
  Sex: Female
  Weight: 59.02 kg

DRUGS (5)
  1. HUMIRA 40 MG/0.8 ML PEN [Suspect]
     Indication: CROHN^S DISEASE
     Dates: start: 20111207, end: 20111207
  2. HUMIRA 40 MG/0.8 ML PEN [Suspect]
     Dosage: (POSSIBLY ONLY RECEIVED 40MG)
     Dates: start: 20111221, end: 20111221
  3. HUMIRA 40 MG/0.8 ML PEN [Suspect]
     Dates: start: 20120104
  4. ASPIRIN [Concomitant]
     Indication: DRUG THERAPY
     Dosage: 1-2 (80 MG TABLETS)
  5. LYSINE [Concomitant]
     Indication: DRY SKIN

REACTIONS (6)
  - Abdominal pain [Recovering/Resolving]
  - Crohn^s disease [Recovering/Resolving]
  - Diarrhoea [Recovered/Resolved]
  - Bronchitis [Recovered/Resolved]
  - Incorrect dose administered [Not Recovered/Not Resolved]
  - Device malfunction [Recovered/Resolved]
